FAERS Safety Report 24009936 (Version 1)
Quarter: 2024Q2

REPORT INFORMATION
  Report Type: Spontaneous
  Country: US (occurrence: US)
  Receive Date: 20240625
  Receipt Date: 20240625
  Transmission Date: 20240716
  Serious: Yes (Other)
  Sender: FDA-Public Use
  Company Number: US-AMGEN-USASP2024122159

PATIENT
  Age: 59 Year
  Sex: Female

DRUGS (7)
  1. REPATHA [Suspect]
     Active Substance: EVOLOCUMAB
     Indication: Type IIa hyperlipidaemia
     Dosage: 420 MILLIGRAM, QMO
     Route: 065
  2. LITHIUM [Concomitant]
     Active Substance: LITHIUM
  3. ATORVASTATIN [Concomitant]
     Active Substance: ATORVASTATIN
  4. HYDROXYZINE [Concomitant]
     Active Substance: HYDROXYZINE HYDROCHLORIDE
  5. ISOSORBIDE [Concomitant]
     Active Substance: ISOSORBIDE
  6. METOPROLOL [Concomitant]
     Active Substance: METOPROLOL
  7. ALBUTEROL [Concomitant]
     Active Substance: ALBUTEROL
     Dosage: (ALBUTEROL INHALER AND NEBULIZER)

REACTIONS (7)
  - Loss of consciousness [Not Recovered/Not Resolved]
  - Injection site vesicles [Recovered/Resolved]
  - Injection site urticaria [Not Recovered/Not Resolved]
  - Injection site erythema [Not Recovered/Not Resolved]
  - Injection site pruritus [Recovered/Resolved]
  - Muscle twitching [Not Recovered/Not Resolved]
  - Therapy interrupted [Unknown]

NARRATIVE: CASE EVENT DATE: 20240618
